FAERS Safety Report 7279677-1 (Version None)
Quarter: 2011Q1

REPORT INFORMATION
  Report Type: 
  Country: None (occurrence: None)
  Receive Date: 20110208
  Receipt Date: 20110201
  Transmission Date: 20110831
  Serious: Yes (Hospitalization)
  Sender: FDA-Public Use
  Company Number: US-US-EMD SERONO, INC.-7009797

PATIENT
  Sex: Male
  Weight: 78 kg

DRUGS (3)
  1. REBIF [Suspect]
     Indication: MULTIPLE SCLEROSIS
     Dates: start: 20090311, end: 20090401
  2. REBIF [Suspect]
     Route: 058
     Dates: start: 20090401, end: 20100901
  3. BACLOFEN [Concomitant]
     Indication: MUSCLE SPASMS
     Route: 048
     Dates: start: 20100201, end: 20100101

REACTIONS (12)
  - NAUSEA [None]
  - DEHYDRATION [None]
  - ASTHENIA [None]
  - EATING DISORDER [None]
  - PERONEAL NERVE PALSY [None]
  - MUSCLE SPASTICITY [None]
  - MALAISE [None]
  - VOMITING [None]
  - HEADACHE [None]
  - GAIT DISTURBANCE [None]
  - PAIN [None]
  - IMPAIRED DRIVING ABILITY [None]
